FAERS Safety Report 6047123-1 (Version None)
Quarter: 2009Q1

REPORT INFORMATION
  Report Type: 
  Country: None (occurrence: None)
  Receive Date: 20090122
  Receipt Date: 20090112
  Transmission Date: 20090719
  Serious: Yes (Hospitalization)
  Sender: FDA-Public Use
  Company Number: PHBS2009BR00512

PATIENT
  Age: 64 Year
  Sex: Male

DRUGS (5)
  1. MYFORTIC [Suspect]
     Indication: RENAL IMPAIRMENT
     Dosage: 720 MG/DAY
  2. IMMUNOGLOBULINS [Suspect]
     Indication: HEPATITIS B
  3. LAMIVUDINE [Suspect]
     Dosage: 150 MG/DAY
  4. TACROLIMUS [Suspect]
     Dosage: 0.1 MG/KG7DAY
  5. TACROLIMUS [Suspect]
     Dosage: 0.05 MG/KG/DAY

REACTIONS (3)
  - GASTROINTESTINAL STROMAL TUMOUR [None]
  - HERNIA OBSTRUCTIVE [None]
  - NODULE [None]
